FAERS Safety Report 10758766 (Version 1)
Quarter: 2015Q1

REPORT INFORMATION
  Report Type: Spontaneous
  Country: US (occurrence: None)
  Receive Date: 20150123
  Receipt Date: 20150123
  Transmission Date: 20150721
  Serious: No
  Sender: FDA-Public Use
  Company Number: 2014TUS0112675

PATIENT
  Age: 50 Year
  Sex: Female
  Weight: 64 kg

DRUGS (9)
  1. VITAMIN D /00107901/ (ERGOCALCIFEROL) [Concomitant]
  2. B12-VITAMIN (CYANOCOBALAMIN) [Concomitant]
  3. ENTYVIO [Suspect]
     Active Substance: VEDOLIZUMAB
     Indication: CROHN^S DISEASE
     Route: 042
     Dates: start: 20141024, end: 20141024
  4. PROTONIX [Concomitant]
     Active Substance: PANTOPRAZOLE SODIUM
  5. LISINOPRIL. [Concomitant]
     Active Substance: LISINOPRIL
  6. ZOFRAN /00955301/ (ONDANSETRON) [Concomitant]
  7. IMURAN /00001501/ (AZATHIOPRINE) TABLET [Concomitant]
  8. LOFIBRA /00499301/ (FENOFIBRATE) [Concomitant]
  9. CALCIUM [Concomitant]
     Active Substance: CALCIUM

REACTIONS (6)
  - Headache [None]
  - Nausea [None]
  - Influenza like illness [None]
  - Vomiting [None]
  - Diarrhoea [None]
  - Hypertension [None]

NARRATIVE: CASE EVENT DATE: 20141024
